FAERS Safety Report 8453482-2 (Version None)
Quarter: 2012Q2

REPORT INFORMATION
  Report Type: 
  Country: None (occurrence: None)
  Receive Date: 20120620
  Receipt Date: 20120519
  Transmission Date: 20120825
  Serious: No
  Sender: FDA-Public Use
  Company Number: US-VERTEX PHARMACEUTICALS INC.-AE-2012-007423

PATIENT
  Sex: Male
  Weight: 74.456 kg

DRUGS (5)
  1. RIBAVIRIN [Concomitant]
     Indication: HEPATITIS C
     Route: 048
     Dates: start: 20120429
  2. BISOPROLOL FUMARATE [Concomitant]
     Indication: BLOOD PRESSURE
     Route: 048
  3. METFORMIN HCL [Concomitant]
     Indication: DIABETES MELLITUS
  4. INCIVEK [Suspect]
     Indication: HEPATITIS C
     Route: 048
     Dates: start: 20120429
  5. PEGINTERFERON ALFA [Concomitant]
     Indication: HEPATITIS C
     Route: 058
     Dates: start: 20120429

REACTIONS (11)
  - PRURITUS GENERALISED [None]
  - ANORECTAL DISCOMFORT [None]
  - DEPRESSION [None]
  - NAUSEA [None]
  - ANXIETY [None]
  - ANAL PRURITUS [None]
  - DYSPHAGIA [None]
  - ORAL PAIN [None]
  - INSOMNIA [None]
  - HAEMORRHOIDS [None]
  - FATIGUE [None]
